FAERS Safety Report 17346578 (Version 1)
Quarter: 2020Q1

REPORT INFORMATION
  Report Type: Report from Study
  Country: US (occurrence: US)
  Receive Date: 20200129
  Receipt Date: 20200129
  Transmission Date: 20200409
  Serious: No
  Sender: FDA-Public Use
  Company Number: US-EXELIXIS-CABO-19023159

PATIENT
  Sex: Male

DRUGS (12)
  1. LEVETIRACETAM. [Concomitant]
     Active Substance: LEVETIRACETAM
  2. CABOMETYX [Suspect]
     Active Substance: CABOZANTINIB S-MALATE
     Indication: RENAL CANCER
     Dosage: 60 MG, QD
     Route: 048
     Dates: start: 20190416
  3. DRONABINOL. [Concomitant]
     Active Substance: DRONABINOL
  4. FLUTICASONE. [Concomitant]
     Active Substance: FLUTICASONE
  5. PANTOPRAZOLE [Concomitant]
     Active Substance: PANTOPRAZOLE
  6. VENTOLIN HFA [Concomitant]
     Active Substance: ALBUTEROL SULFATE
  7. PREDNISONE. [Concomitant]
     Active Substance: PREDNISONE
  8. ONDANSETRON [Concomitant]
     Active Substance: ONDANSETRON
  9. LEVOTHYROXINE SODIUM. [Concomitant]
     Active Substance: LEVOTHYROXINE SODIUM
  10. FAMOTIDINE. [Concomitant]
     Active Substance: FAMOTIDINE
  11. CLONAZEPAM. [Concomitant]
     Active Substance: CLONAZEPAM
  12. LIDOCAINE. [Concomitant]
     Active Substance: LIDOCAINE

REACTIONS (8)
  - Oral discomfort [Unknown]
  - Fatigue [Unknown]
  - Blood pressure increased [Unknown]
  - Unevaluable event [Unknown]
  - Diarrhoea [Unknown]
  - Stomatitis [Unknown]
  - Hair colour changes [Unknown]
  - Dry skin [Unknown]
